FAERS Safety Report 7899028-9 (Version None)
Quarter: 2011Q4

REPORT INFORMATION
  Report Type: 
  Country: None (occurrence: None)
  Receive Date: 20111107
  Receipt Date: 20111028
  Transmission Date: 20120403
  Serious: Yes (Other)
  Sender: FDA-Public Use
  Company Number: US-ASTRAZENECA-2011SE63391

PATIENT
  Age: 69 Year
  Sex: Female

DRUGS (5)
  1. PULMICORT [Suspect]
     Route: 055
  2. VENTOLIN HFA [Concomitant]
  3. ASMANEX TWISTHALER [Concomitant]
  4. PULMICORT [Suspect]
     Route: 055
  5. ALBUTEROL [Concomitant]

REACTIONS (9)
  - OROPHARYNGEAL BLISTERING [None]
  - LUNG DISORDER [None]
  - ASTHMA [None]
  - LIP BLISTER [None]
  - MONOPARESIS [None]
  - NERVE INJURY [None]
  - ARTHROPATHY [None]
  - FALL [None]
  - WEIGHT DECREASED [None]
